FAERS Safety Report 23628094 (Version 1)
Quarter: 2024Q1

REPORT INFORMATION
  Report Type: Spontaneous
  Country: CN (occurrence: CN)
  Receive Date: 20240313
  Receipt Date: 20240313
  Transmission Date: 20240410
  Serious: Yes (Other)
  Sender: FDA-Public Use
  Company Number: None

PATIENT
  Age: 37 Year
  Sex: Male
  Weight: 102 kg

DRUGS (2)
  1. MANNITOL [Suspect]
     Active Substance: MANNITOL
     Indication: Subarachnoid haemorrhage
     Dosage: (DOSAGE FORM: INJECTION) 125 ML (MILLILITRE) THREE TIMES A DAY
     Route: 041
     Dates: start: 20240115, end: 20240119
  2. DEXAMETHASONE SODIUM PHOSPHATE [Suspect]
     Active Substance: DEXAMETHASONE PHOSPHATE\DEXAMETHASONE SODIUM PHOSPHATE
     Indication: Subarachnoid haemorrhage
     Dosage: (MANUFACTURER: CHENGCHENG PHARMACEUTICAL CO., LTD.) 5 MG (MILLIGRAM) THREE TIMES A DAY
     Route: 041
     Dates: start: 20240115, end: 20240119

REACTIONS (1)
  - Hypokalaemia [Recovered/Resolved]

NARRATIVE: CASE EVENT DATE: 20240117
